FAERS Safety Report 4518175-2 (Version None)
Quarter: 2004Q4

REPORT INFORMATION
  Report Type: 
  Country: None (occurrence: None)
  Receive Date: 20041203
  Receipt Date: 20041124
  Transmission Date: 20050328
  Serious: Yes (Other)
  Sender: FDA-Public Use
  Company Number: US-BRISTOL-MYERS SQUIBB COMPANY-12776753

PATIENT
  Age: 54 Year
  Sex: Female

DRUGS (2)
  1. ESTRACE [Suspect]
     Indication: MENOPAUSAL SYMPTOMS
  2. PROVERA [Suspect]
     Indication: MENOPAUSAL SYMPTOMS

REACTIONS (1)
  - BREAST CANCER [None]
